FAERS Safety Report 6356907 (Version 3)
Quarter: 2017Q3

REPORT INFORMATION
  Report Type: Spontaneous
  Country: US (occurrence: US)
  Receive Date: 20061114
  Receipt Date: 20170928
  Transmission Date: 20171128
  Serious: Yes (Death, Hospitalization, Other)
  Sender: FDA-Public Use
  Company Number: US-PFIZER INC-2006136711

PATIENT
  Age: 29 Year
  Sex: Female
  Weight: 63.5 kg

DRUGS (6)
  1. BEXTRA [Suspect]
     Active Substance: VALDECOXIB
     Indication: RHEUMATOID ARTHRITIS
     Dosage: UNK
  2. VIOXX [Suspect]
     Active Substance: ROFECOXIB
     Indication: RHEUMATOID ARTHRITIS
  3. CELEBREX [Suspect]
     Active Substance: CELECOXIB
     Indication: SYSTEMIC LUPUS ERYTHEMATOSUS
  4. CELEBREX [Suspect]
     Active Substance: CELECOXIB
     Indication: RHEUMATOID ARTHRITIS
     Dosage: UNK
  5. BEXTRA [Suspect]
     Active Substance: VALDECOXIB
     Indication: SYSTEMIC LUPUS ERYTHEMATOSUS
  6. VIOXX [Suspect]
     Active Substance: ROFECOXIB
     Indication: PAIN MANAGEMENT
     Dosage: 25 MG, 1X/DAY
     Dates: start: 19990601, end: 20020118

REACTIONS (2)
  - Myocardial infarction [Unknown]
  - Ischaemic stroke [Fatal]

NARRATIVE: CASE EVENT DATE: 20020118
